FAERS Safety Report 5742036-4 (Version None)
Quarter: 2008Q2

REPORT INFORMATION
  Report Type: 
  Country: None (occurrence: None)
  Receive Date: 20080519
  Receipt Date: 20080509
  Transmission Date: 20081010
  Serious: Yes (Life-Threatening)
  Sender: FDA-Public Use
  Company Number: DE-MERCK-0711DEU00291

PATIENT
  Age: 10 Year
  Sex: Male
  Weight: 46 kg

DRUGS (3)
  1. SINGULAIR [Suspect]
     Indication: ASTHMA
     Route: 048
     Dates: start: 20070921, end: 20071105
  2. FORMOTEROL FUMARATE [Concomitant]
     Route: 065
  3. ALBUTEROL [Concomitant]

REACTIONS (3)
  - DEPRESSION [None]
  - NIGHTMARE [None]
  - SUICIDAL IDEATION [None]
